FAERS Safety Report 6521819-7 (Version None)
Quarter: 2009Q4

REPORT INFORMATION
  Report Type: 
  Country: None (occurrence: None)
  Receive Date: 20091230
  Receipt Date: 20091215
  Transmission Date: 20100525
  Serious: Yes (Other)
  Sender: FDA-Public Use
  Company Number: CO-PFIZER INC-2009311251

PATIENT
  Sex: Female

DRUGS (5)
  1. GENOTROPIN [Suspect]
     Indication: BODY HEIGHT BELOW NORMAL
     Dosage: 1.2 MG, 1X/DAY
     Route: 058
     Dates: start: 20070530, end: 20091130
  2. GENOTROPIN [Suspect]
     Dosage: 2 MG, 1X/DAY
  3. FOLIC ACID [Concomitant]
  4. VITAMIN C [Concomitant]
  5. HYDROXYUREA [Concomitant]

REACTIONS (2)
  - HAEMOLYSIS [None]
  - OSTEONECROSIS [None]
